FAERS Safety Report 4687413-8 (Version None)
Quarter: 2005Q2

REPORT INFORMATION
  Report Type: 
  Country: None (occurrence: None)
  Receive Date: 20050608
  Receipt Date: 20050608
  Transmission Date: 20051028
  Serious: Yes (Hospitalization)
  Sender: FDA-Public Use
  Company Number: None

PATIENT
  Age: 76 Year
  Sex: Male
  Weight: 91.173 kg

DRUGS (1)
  1. PIROXICAM [Suspect]
     Indication: BACK PAIN
     Dosage: 20MG  DAILY ORAL
     Route: 048
     Dates: start: 20040524, end: 20050601

REACTIONS (5)
  - ABDOMINAL PAIN UPPER [None]
  - BLOOD PRESSURE ORTHOSTATIC [None]
  - DUODENAL ULCER HAEMORRHAGE [None]
  - FAECES DISCOLOURED [None]
  - GASTROOESOPHAGEAL REFLUX DISEASE [None]
